FAERS Safety Report 19728152 (Version 1)
Quarter: 2021Q3

REPORT INFORMATION
  Report Type: Report from Study
  Country: GB (occurrence: GB)
  Receive Date: 20210820
  Receipt Date: 20210820
  Transmission Date: 20211014
  Serious: Yes (Hospitalization)
  Sender: FDA-Public Use
  Company Number: GB-MYLANLABS-2021M1054132

PATIENT
  Age: 52 Year
  Sex: Male

DRUGS (6)
  1. MYCOPHENOLATE MOFETIL. [Suspect]
     Active Substance: MYCOPHENOLATE MOFETIL
     Indication: STIFF PERSON SYNDROME
     Dosage: UNK
     Route: 065
  2. IMMUNOGLOBULIN                     /07494701/ [Suspect]
     Active Substance: IMMUNE GLOBULIN NOS
     Indication: IMMUNOSUPPRESSANT DRUG THERAPY
  3. MYCOPHENOLATE MOFETIL. [Suspect]
     Active Substance: MYCOPHENOLATE MOFETIL
     Indication: IMMUNOSUPPRESSANT DRUG THERAPY
  4. IMMUNOGLOBULIN                     /07494701/ [Suspect]
     Active Substance: IMMUNE GLOBULIN NOS
     Indication: ENCEPHALOMYELITIS
  5. IMMUNOGLOBULIN                     /07494701/ [Suspect]
     Active Substance: IMMUNE GLOBULIN NOS
     Indication: STIFF PERSON SYNDROME
     Dosage: 150 GRAM, Q3MONTHS
     Route: 042
  6. MYCOPHENOLATE MOFETIL. [Suspect]
     Active Substance: MYCOPHENOLATE MOFETIL
     Indication: ENCEPHALOMYELITIS

REACTIONS (2)
  - Drug intolerance [Unknown]
  - Treatment failure [Unknown]
